FAERS Safety Report 8495417-2 (Version None)
Quarter: 2012Q3

REPORT INFORMATION
  Report Type: 
  Country: None (occurrence: None)
  Receive Date: 20120709
  Receipt Date: 20120628
  Transmission Date: 20120928
  Serious: Yes (Life-Threatening, Other)
  Sender: FDA-Public Use
  Company Number: US-BAYER-2012-026539

PATIENT
  Sex: Female
  Weight: 63 kg

DRUGS (13)
  1. IMITREX [Concomitant]
     Dosage: UNK
     Dates: start: 20100510
  2. YASMIN [Suspect]
     Indication: PREMENSTRUAL SYNDROME
  3. DESMOPRESSIN ACETATE [Concomitant]
     Dosage: 0.01 %, UNK
     Dates: start: 20100223, end: 20100406
  4. DDAVP [Concomitant]
     Dosage: 0.2 MG, TID
     Route: 045
     Dates: start: 20100501
  5. YASMIN [Suspect]
     Indication: ACNE
  6. MAXALT-MLT [Concomitant]
     Indication: MIGRAINE
     Dosage: 10 MG,1 TAB PRN START OF MIGRAINE MAY REPEAT AFTER 2 HOURS, UNK
     Dates: start: 20100510
  7. DDAVP [Concomitant]
     Indication: DIABETES MELLITUS
     Dosage: 10 MCG/INH 2 SPRAY
     Route: 045
     Dates: start: 20100510
  8. YAZ [Suspect]
     Indication: ACNE
     Dosage: UNK
     Dates: start: 20090401, end: 20091001
  9. YAZ [Suspect]
     Indication: PREMENSTRUAL SYNDROME
     Dosage: UNK
     Dates: start: 20100301, end: 20100501
  10. YAZ [Suspect]
  11. YAZ [Suspect]
     Indication: CONTRACEPTION
     Dosage: UNK
     Dates: start: 20070201, end: 20080901
  12. YASMIN [Suspect]
     Indication: CONTRACEPTION
     Dosage: UNK
     Dates: start: 20020101, end: 20070131
  13. YASMIN [Suspect]

REACTIONS (10)
  - HEADACHE [None]
  - MIGRAINE WITH AURA [None]
  - MENTAL DISORDER [None]
  - VISUAL IMPAIRMENT [None]
  - INJURY [None]
  - EMOTIONAL DISTRESS [None]
  - CAROTID ARTERY ANEURYSM [None]
  - ENCEPHALOMALACIA [None]
  - CEREBROVASCULAR ACCIDENT [None]
  - ANHEDONIA [None]
